FAERS Safety Report 14317858 (Version 2)
Quarter: 2017Q4

REPORT INFORMATION
  Report Type: Spontaneous
  Country: US (occurrence: US)
  Receive Date: 20171222
  Receipt Date: 20171228
  Transmission Date: 20180321
  Serious: Yes (Death)
  Sender: FDA-Public Use
  Company Number: US-JNJFOC-20171228646

PATIENT
  Age: 96 Year
  Sex: Male
  Weight: 72.58 kg

DRUGS (2)
  1. HALDOL [Suspect]
     Active Substance: HALOPERIDOL
     Indication: PRODUCT USED FOR UNKNOWN INDICATION
     Route: 065
  2. RISPERDAL [Suspect]
     Active Substance: RISPERIDONE
     Indication: DEMENTIA ALZHEIMER^S TYPE
     Dosage: AT 5 PM
     Route: 048
     Dates: start: 2013

REACTIONS (8)
  - Drooling [Unknown]
  - Drug dose omission [Unknown]
  - Weight decreased [Unknown]
  - Cerebrovascular accident [Fatal]
  - Tardive dyskinesia [Unknown]
  - Myocardial infarction [Fatal]
  - Dementia Alzheimer^s type [Fatal]
  - Depression [Unknown]

NARRATIVE: CASE EVENT DATE: 201612
